FAERS Safety Report 25791561 (Version 1)
Quarter: 2025Q3

REPORT INFORMATION
  Report Type: Report from Study
  Country: US (occurrence: US)
  Receive Date: 20250911
  Receipt Date: 20250911
  Transmission Date: 20251021
  Serious: Yes (Hospitalization)
  Sender: BOEHRINGER INGELHEIM
  Company Number: US-BoehringerIngelheim-2024-BI-021413

PATIENT
  Sex: Female

DRUGS (5)
  1. OFEV [Suspect]
     Active Substance: NINTEDANIB
     Indication: Idiopathic pulmonary fibrosis
  2. OFEV [Suspect]
     Active Substance: NINTEDANIB
  3. TADALAFIL [Concomitant]
     Active Substance: TADALAFIL
     Indication: Product used for unknown indication
  4. SILDENAFIL [Concomitant]
     Active Substance: SILDENAFIL
     Indication: Product used for unknown indication
  5. TYVASO [Concomitant]
     Active Substance: TREPROSTINIL
     Indication: Product used for unknown indication

REACTIONS (13)
  - Lower gastrointestinal haemorrhage [Unknown]
  - Headache [Unknown]
  - Pruritus [Unknown]
  - Erythema [Unknown]
  - Cough [Unknown]
  - Dyspnoea [Unknown]
  - Constipation [Unknown]
  - Nausea [Unknown]
  - Abdominal discomfort [Unknown]
  - Hepatic enzyme increased [Unknown]
  - Decreased appetite [Unknown]
  - Fatigue [Unknown]
  - White blood cell count decreased [Unknown]
